FAERS Safety Report 6938239-3 (Version None)
Quarter: 2010Q3

REPORT INFORMATION
  Report Type: 
  Country: None (occurrence: None)
  Receive Date: 20100824
  Receipt Date: 20100209
  Transmission Date: 20110219
  Serious: No
  Sender: FDA-Public Use
  Company Number: A0803531A

PATIENT
  Age: 42 Year
  Sex: Female
  Weight: 69.5 kg

DRUGS (13)
  1. MALARONE [Suspect]
     Indication: MALARIA PROPHYLAXIS
     Dosage: 1TAB PER DAY
     Route: 048
     Dates: start: 20090729, end: 20090813
  2. HEPATITIS B VACCINE [Concomitant]
     Indication: PROPHYLAXIS
     Dosage: 1ML SINGLE DOSE
     Route: 030
     Dates: start: 20090713, end: 20090713
  3. HEPATITIS A VACCINE [Concomitant]
     Indication: PROPHYLAXIS
     Route: 030
     Dates: start: 20090514, end: 20090514
  4. IPV [Concomitant]
     Indication: PROPHYLAXIS
     Route: 058
     Dates: start: 20090708, end: 20090708
  5. MENINGOCOCCAL VACCINE [Concomitant]
     Indication: PROPHYLAXIS
     Route: 030
     Dates: start: 20090708, end: 20090708
  6. TETANUS VACCINE [Concomitant]
     Indication: PROPHYLAXIS
     Route: 030
     Dates: start: 20090514, end: 20090514
  7. DDAVP [Concomitant]
     Indication: DIABETES INSIPIDUS
  8. CLARITIN [Concomitant]
  9. MMR VACCINE [Concomitant]
     Indication: PROPHYLAXIS
     Route: 058
     Dates: start: 20090713, end: 20090713
  10. ALBUTEROL [Concomitant]
     Indication: ASTHMA
     Dosage: 2PUFF AS REQUIRED
     Route: 055
  11. TYPHOID VACCINE [Concomitant]
     Indication: PROPHYLAXIS
     Dosage: .5ML SINGLE DOSE
     Route: 030
     Dates: start: 20090727, end: 20090727
  12. YELLOW FEVER VACCINE [Concomitant]
     Indication: PROPHYLAXIS
     Dosage: .5ML SINGLE DOSE
     Route: 058
     Dates: start: 20090713, end: 20090713
  13. DOXYCYCLINE [Concomitant]
     Dates: start: 20090801

REACTIONS (3)
  - DYSPHAGIA [None]
  - DYSPNOEA [None]
  - MUSCULAR WEAKNESS [None]
